FAERS Safety Report 5973365-7 (Version None)
Quarter: 2008Q4

REPORT INFORMATION
  Report Type: 
  Country: None (occurrence: None)
  Receive Date: 20081201
  Receipt Date: 20081121
  Transmission Date: 20090506
  Serious: Yes (Hospitalization, Disabling, Other)
  Sender: FDA-Public Use
  Company Number: US-ALLERGAN-0808500US

PATIENT
  Sex: Female
  Weight: 49.887 kg

DRUGS (15)
  1. BOTOX [Suspect]
     Indication: HEADACHE
     Dosage: 100 UNITS, SINGLE
     Route: 030
     Dates: start: 20080205, end: 20080205
  2. BOTOX [Suspect]
     Indication: NERVE COMPRESSION
  3. BOTOX [Suspect]
     Indication: TORTICOLLIS
  4. LIDOCAINE [Concomitant]
     Indication: NERVE BLOCK
     Dosage: UNK, SINGLE
     Dates: start: 20080205, end: 20080205
  5. ACTIQ [Concomitant]
     Indication: PAIN
     Dosage: 1200 UG, QD, PRN
     Route: 048
  6. CLONAZEPAM [Concomitant]
     Indication: ANXIETY
     Dosage: 0.5 MG, TID, PRN
     Route: 048
  7. DURAGESIC-100 [Concomitant]
     Indication: PAIN
     Dosage: 100 UG, Q 2 D
     Route: 061
  8. LYRICA [Concomitant]
     Dosage: 300 MG, BID
     Route: 048
  9. OXYCODONE HCL [Concomitant]
     Indication: PAIN
     Dosage: 15 MG, 1-2 TAB, Q 4-6 H, PRN
     Route: 048
  10. SEROQUEL [Concomitant]
     Indication: INSOMNIA
     Dosage: 100 MG, 1-2 TAB, PRN, QHS
     Route: 048
  11. SOMA [Concomitant]
     Indication: MUSCLE SPASMS
     Dosage: 350 MG, QID
     Route: 048
  12. SOMA [Concomitant]
     Indication: MUSCULOSKELETAL STIFFNESS
  13. TOPAMAX [Concomitant]
     Indication: HEADACHE
     Dosage: 100 MG, QHS
     Route: 048
  14. OPANA [Concomitant]
     Indication: PAIN
  15. ESTRADIOL [Concomitant]
     Indication: HORMONE REPLACEMENT THERAPY
     Dosage: 2 MG, QD
     Route: 048

REACTIONS (8)
  - APHASIA [None]
  - DRUG INEFFECTIVE [None]
  - DYSPHAGIA [None]
  - DYSPHONIA [None]
  - LETHARGY [None]
  - MUSCULAR WEAKNESS [None]
  - RENAL FAILURE ACUTE [None]
  - VOMITING [None]
